FAERS Safety Report 11704020 (Version 1)
Quarter: 2015Q4

REPORT INFORMATION
  Report Type: Spontaneous
  Country: US (occurrence: None)
  Receive Date: 20151105
  Receipt Date: 20151105
  Transmission Date: 20160304
  Serious: No
  Sender: FDA-Public Use
  Company Number: None

PATIENT
  Age: 68 Year
  Sex: Male
  Weight: 65.77 kg

DRUGS (3)
  1. THYROXINE [Concomitant]
     Active Substance: LEVOTHYROXINE
  2. ATROVENT [Suspect]
     Active Substance: IPRATROPIUM BROMIDE
     Indication: CHRONIC OBSTRUCTIVE PULMONARY DISEASE
     Dosage: 2 INHALATIONS
     Route: 055
  3. MULTIVITAMIN [Concomitant]
     Active Substance: VITAMINS

REACTIONS (13)
  - Asthenia [None]
  - Hyperhidrosis [None]
  - Gingival pain [None]
  - Faecal volume increased [None]
  - Disorientation [None]
  - Feeling cold [None]
  - Vomiting [None]
  - Chest pain [None]
  - Malaise [None]
  - Feeling abnormal [None]
  - Pain in extremity [None]
  - Feeling hot [None]
  - Incorrect dose administered [None]

NARRATIVE: CASE EVENT DATE: 20151019
